FAERS Safety Report 4539587-7 (Version None)
Quarter: 2004Q4

REPORT INFORMATION
  Report Type: 
  Country: None (occurrence: None)
  Receive Date: 20041227
  Receipt Date: 20041227
  Transmission Date: 20050328
  Serious: No
  Sender: FDA-Public Use
  Company Number: None

PATIENT
  Age: 73 Year
  Sex: Male
  Weight: 85.2762 kg

DRUGS (6)
  1. BEXTRA [Suspect]
     Indication: OSTEOARTHRITIS
     Dosage: 10-20 MG. ORAL 010/ SPRING-SUMERR 2004
     Dates: start: 20040101
  2. ENALAPRIL [Suspect]
     Dosage: DAILY
  3. INDAPAMIDE [Suspect]
     Dosage: DAILY
  4. LIPITOR [Suspect]
     Dosage: DAILY
  5. ZETIA [Suspect]
     Dosage: SEVERAL YEARS
  6. ASPIRIN [Concomitant]

REACTIONS (3)
  - CELLULITIS [None]
  - DEEP VEIN THROMBOSIS [None]
  - PYREXIA [None]
